FAERS Safety Report 7599894 (Version 2)
Quarter: 2014Q2

REPORT INFORMATION
  Report Type: Report from Study
  Country: GR (occurrence: GR)
  Receive Date: 20100921
  Receipt Date: 20140508
  Transmission Date: 20141212
  Serious: Yes (Death)
  Sender: FDA-Public Use
  Company Number: GR-ROCHE-727628

PATIENT
  Sex: 0

DRUGS (3)
  1. CAPECITABINE [Suspect]
     Indication: COLORECTAL CANCER METASTATIC
     Dosage: ON DAYS 1-7 EVERY TWO WEEK FOR 134 CYCLES.
     Route: 048
  2. BEVACIZUMAB [Suspect]
     Indication: COLORECTAL CANCER METASTATIC
     Dosage: OVER 60-90 MINUTES
     Route: 042
  3. L-OHP [Suspect]
     Indication: COLORECTAL CANCER METASTATIC
     Dosage: ON DAY ONE FOR 134 CYCLES. OVER 240 MINUTES ON DAY 1.
     Route: 042

REACTIONS (1)
  - Acute respiratory distress syndrome [Fatal]
